FAERS Safety Report 11302738 (Version 1)
Quarter: 2015Q3

REPORT INFORMATION
  Report Type: Spontaneous
  Country: US (occurrence: US)
  Receive Date: 20150723
  Receipt Date: 20150723
  Transmission Date: 20151125
  Serious: Yes (Life-Threatening, Hospitalization)
  Sender: FDA-Public Use
  Company Number: US-DSJP-DSU-2015-119127

PATIENT
  Age: 51 Year
  Sex: Female

DRUGS (4)
  1. SAVAYSA [Suspect]
     Active Substance: EDOXABAN TOSYLATE
     Indication: DEEP VEIN THROMBOSIS
     Dosage: 30 MG, UNK
     Dates: start: 201503, end: 20150615
  2. INHALERIN [Concomitant]
     Dosage: UNK
  3. LIALDA [Concomitant]
     Active Substance: MESALAMINE
     Dosage: 1.2 MG, BID
  4. XANAX [Concomitant]
     Active Substance: ALPRAZOLAM
     Dosage: UNK

REACTIONS (1)
  - Gastrointestinal haemorrhage [Unknown]

NARRATIVE: CASE EVENT DATE: 20150615
